FAERS Safety Report 10025173 (Version 1)
Quarter: 2014Q1

REPORT INFORMATION
  Report Type: Spontaneous
  Country: US (occurrence: None)
  Receive Date: 20140214
  Receipt Date: 20140214
  Transmission Date: 20141002
  Serious: Yes (Other)
  Sender: FDA-Public Use
  Company Number: ADR-2014-00110

PATIENT
  Sex: Female

DRUGS (3)
  1. BACLOFEN [Suspect]
     Indication: MUSCLE SPASTICITY
     Dates: start: 2000
  2. DILAUDID [Suspect]
  3. HYDROMORPHONE [Suspect]

REACTIONS (7)
  - Therapeutic response decreased [None]
  - Pain [None]
  - Rheumatoid nodule [None]
  - Overdose [None]
  - Cardiac arrest [None]
  - Paralysis [None]
  - Granuloma [None]
